FAERS Safety Report 4459835-1 (Version None)
Quarter: 2004Q3

REPORT INFORMATION
  Report Type: 
  Country: None (occurrence: None)
  Receive Date: 20040927
  Receipt Date: 20040915
  Transmission Date: 20050211
  Serious: Yes (Other)
  Sender: FDA-Public Use
  Company Number: 2004066276

PATIENT
  Sex: Female
  Weight: 70.3075 kg

DRUGS (4)
  1. VISINE A.C. (TETRYZOLINE, ZINC SULFATE) [Suspect]
     Indication: EYE PRURITUS
     Dosage: 1 DROP OU  PRN, OPHTHALMIC
     Route: 047
  2. ANTIHYPERTENSIVES (ANTIHYPERTENSIVES) [Concomitant]
  3. FLUOXETINE HYDROCHLORIDE [Concomitant]
  4. CARDIAC THERAPY (CARDIAC THERAPY) [Concomitant]

REACTIONS (1)
  - CATARACT OPERATION [None]
